FAERS Safety Report 7724523 (Version 2)
Quarter: 2012Q4

REPORT INFORMATION
  Report Type: 
  Country: US (occurrence: US)
  Receive Date: 20101221
  Receipt Date: 20121029
  Transmission Date: 20130627
  Serious: Yes (Hospitalization, Other)
  Sender: FDA-Public Use
  Company Number: US-ROCHE-727298

PATIENT
  Age: 28 None
  Sex: Female
  Weight: 63.5 kg

DRUGS (3)
  1. ACCUTANE [Suspect]
     Indication: ACNE
     Route: 065
     Dates: start: 1995, end: 1997
  2. YASMIN [Concomitant]
     Indication: CONTRACEPTION
     Route: 065
  3. ORTHO-CYCLEN [Concomitant]
     Indication: CONTRACEPTION
     Route: 065

REACTIONS (11)
  - Colitis ulcerative [Recovered/Resolved]
  - Lower gastrointestinal haemorrhage [Unknown]
  - Oedema [Unknown]
  - Inflammatory bowel disease [Unknown]
  - Large intestine polyp [Unknown]
  - Depression [Unknown]
  - Mental disorder [Unknown]
  - Iron deficiency anaemia [Unknown]
  - Hypertension [Unknown]
  - Osteoarthritis [Unknown]
  - Gastrointestinal injury [Unknown]
